FAERS Safety Report 6876688-2 (Version None)
Quarter: 2010Q3

REPORT INFORMATION
  Report Type: 
  Country: None (occurrence: None)
  Receive Date: 20100727
  Receipt Date: 20100721
  Transmission Date: 20110219
  Serious: Yes (Other)
  Sender: FDA-Public Use
  Company Number: IE-ROCHE-713705

PATIENT
  Age: 60 Year
  Sex: Male
  Weight: 65 kg

DRUGS (3)
  1. BEVACIZUMAB [Suspect]
     Indication: COLORECTAL CANCER
     Dosage: FREQUENCY REPORTED AS 2 WEEKLY
     Route: 042
     Dates: start: 20100706
  2. FOLINIC ACID [Concomitant]
     Indication: COLORECTAL CANCER
     Dosage: ROUTE REPORTED AS INTRAVENOUS INFUSION. FREQUENCY: 2 WEEKLY
     Route: 042
     Dates: start: 20100706
  3. OXALIPLATIN [Concomitant]
     Indication: COLORECTAL CANCER
     Dosage: ROUTE REPORTED AS IV INFUSION.  FREQUENCY: 2 WEEKLY
     Route: 042
     Dates: start: 20100706

REACTIONS (2)
  - BLINDNESS TRANSIENT [None]
  - FEELING ABNORMAL [None]
